FAERS Safety Report 8065042-6 (Version None)
Quarter: 2012Q1

REPORT INFORMATION
  Report Type: 
  Country: None (occurrence: None)
  Receive Date: 20120124
  Receipt Date: 20120120
  Transmission Date: 20120608
  Serious: No
  Sender: FDA-Public Use
  Company Number: US-PFIZER INC-2012017212

PATIENT
  Sex: Male
  Weight: 109 kg

DRUGS (2)
  1. TIKOSYN [Suspect]
     Indication: CARDIAC DISORDER
     Dosage: 250 UG, 3X/DAY
     Route: 048
     Dates: start: 20111212
  2. ATACAND [Concomitant]
     Indication: HYPERTENSION
     Dosage: UNK, DAILY (FOUR TABLETS IN THE MORNING)
     Route: 048

REACTIONS (1)
  - RASH [None]
